FAERS Safety Report 24283512 (Version 5)
Quarter: 2025Q2

REPORT INFORMATION
  Report Type: Report from Study
  Country: US (occurrence: US)
  Receive Date: 20240904
  Receipt Date: 20250516
  Transmission Date: 20250717
  Serious: No
  Sender: SUNOVION
  Company Number: US-SUMITOMO PHARMA SWITZERLAND GMBH-2024SPA001281

PATIENT

DRUGS (2)
  1. ORGOVYX [Suspect]
     Active Substance: RELUGOLIX
     Indication: Prostate cancer
     Route: 048
  2. ORGOVYX [Suspect]
     Active Substance: RELUGOLIX
     Dosage: 120 MG, QD
     Route: 048
     Dates: start: 20240507

REACTIONS (16)
  - Sleep deficit [Unknown]
  - Somnolence [Unknown]
  - Laziness [Unknown]
  - Pyrexia [Unknown]
  - Gastrointestinal bacterial infection [Unknown]
  - Abdominal pain [Recovered/Resolved]
  - Musculoskeletal chest pain [Unknown]
  - Fatigue [Unknown]
  - Asthenia [Unknown]
  - Feeling hot [Unknown]
  - Pain in extremity [Recovered/Resolved]
  - Hot flush [Unknown]
  - Headache [Unknown]
  - Insomnia [Unknown]
  - Intentional product misuse [Unknown]
  - Product dose omission issue [Unknown]
